FAERS Safety Report 7413770-5 (Version None)
Quarter: 2011Q2

REPORT INFORMATION
  Report Type: 
  Country: None (occurrence: None)
  Receive Date: 20110413
  Receipt Date: 20110405
  Transmission Date: 20111010
  Serious: Yes (Hospitalization)
  Sender: FDA-Public Use
  Company Number: US-SANOFI-AVENTIS-2011SA021452

PATIENT
  Sex: Male

DRUGS (2)
  1. PLAVIX [Suspect]
     Route: 065
  2. PRILOSEC [Suspect]
     Route: 065

REACTIONS (3)
  - MYOCARDIAL INFARCTION [None]
  - CONVULSION [None]
  - THROMBOSIS [None]
